FAERS Safety Report 17975913 (Version 1)
Quarter: 2020Q3

REPORT INFORMATION
  Report Type: Spontaneous
  Country: DE (occurrence: DE)
  Receive Date: 20200702
  Receipt Date: 20200702
  Transmission Date: 20201103
  Serious: Yes (Hospitalization, Other)
  Sender: FDA-Public Use
  Company Number: NVSC2020DE174981

PATIENT
  Sex: Female
  Weight: 2.4 kg

DRUGS (6)
  1. PHENYTOIN. [Suspect]
     Active Substance: PHENYTOIN
     Indication: FOETAL EXPOSURE DURING PREGNANCY
     Dosage: MATERNAL DOSE: 400 MG
     Route: 064
     Dates: start: 20140402, end: 20141126
  2. CLOBAZAM. [Suspect]
     Active Substance: CLOBAZAM
     Indication: FOETAL EXPOSURE DURING PREGNANCY
     Dosage: MATERNAL DOSE: 40 MG, QD
     Route: 064
     Dates: start: 20140402, end: 20141126
  3. BETAMETHASONE. [Concomitant]
     Active Substance: BETAMETHASONE
     Indication: FOETAL EXPOSURE DURING PREGNANCY
     Dosage: UNK(3RD TRIMESTER)
     Route: 064
  4. CLONAZEPAM. [Suspect]
     Active Substance: CLONAZEPAM
     Indication: FOETAL EXPOSURE DURING PREGNANCY
     Dosage: MATERNAL DOSE: 40 MG, QD
     Route: 064
     Dates: start: 20140402, end: 20141126
  5. LEVETIRACETAM. [Suspect]
     Active Substance: LEVETIRACETAM
     Indication: FOETAL EXPOSURE DURING PREGNANCY
     Dosage: MATERNAL DOSE: 1500 MG
     Route: 064
     Dates: start: 20140402, end: 20141126
  6. VALPROATE [Suspect]
     Active Substance: VALPROIC ACID
     Indication: FOETAL EXPOSURE DURING PREGNANCY
     Dosage: MATERNAL DOSE: 500 MG
     Route: 064
     Dates: start: 20140402, end: 20141126

REACTIONS (7)
  - Bradycardia neonatal [Recovered/Resolved]
  - Selective eating disorder [Recovered/Resolved]
  - Low birth weight baby [Unknown]
  - Premature baby [Unknown]
  - Foetal exposure during pregnancy [Unknown]
  - Weight gain poor [Unknown]
  - Respiratory disorder neonatal [Recovered/Resolved]

NARRATIVE: CASE EVENT DATE: 20141126
